FAERS Safety Report 5643456-9 (Version None)
Quarter: 2008Q1

REPORT INFORMATION
  Report Type: 
  Country: None (occurrence: None)
  Receive Date: 20080226
  Receipt Date: 20080212
  Transmission Date: 20080703
  Serious: Yes (Hospitalization)
  Sender: FDA-Public Use
  Company Number: 02100-JPN-07-0649

PATIENT
  Age: 57 Year
  Sex: Female

DRUGS (50)
  1. PLETAL [Suspect]
     Indication: CEREBROVASCULAR ACCIDENT
     Dosage: 100 MG, BID ORAL
     Route: 048
     Dates: start: 20070912, end: 20080111
  2. PLAVIX [Suspect]
     Indication: CEREBROVASCULAR ACCIDENT
     Dosage: 75 MG, QD ORAL; 75 MG, QD; ORAL
     Route: 048
     Dates: start: 20070912, end: 20080111
  3. PLAVIX [Suspect]
     Indication: CEREBROVASCULAR ACCIDENT
     Dosage: 75 MG, QD ORAL; 75 MG, QD; ORAL
     Route: 048
     Dates: start: 20080115
  4. METFORMIN HCL [Concomitant]
  5. GLIMEPIRIDE [Concomitant]
  6. ATORVASTATIN CALCIUM [Concomitant]
  7. CITALOPRAM HYDROBROMIDE [Concomitant]
  8. RAUBASINE-ALMITRINE BISMESILATE (RAUBASINE-ALMITRINE BISMESILATE) [Concomitant]
  9. RANITIDINE [Concomitant]
  10. LACTOBACILLUS ACIDOPHILLUS (LACTOBACILLUS ACIDOPHILLUS) [Concomitant]
  11. ASPIRIN [Concomitant]
  12. TELMISARTAN-HYDROCHLOROTHIAZIDE (TELMISARTAN-HYDROCHLOROTHIAZIDE) [Concomitant]
  13. CLOPIDOGREL [Concomitant]
  14. BISACODYL (BISACODYL) [Concomitant]
  15. TAMSULOSIN HYDROCHLORIDE (TAMSULOSIN HYDROCHLORIDE) [Concomitant]
  16. METHYLPREDNISOLONE ACEPONATE (METHYLPREDNISOLONE ACEPONATE) [Concomitant]
  17. METFORMIN (METFORMIN) [Concomitant]
  18. TRAMADOL HCL [Concomitant]
  19. PAN-B-COMP (MADE BY DAI-HAN) (PAN-B-COMP (MAND BY DAI-HAN)) [Concomitant]
  20. MAGNESIUM OXIDE (MAGNESIUM OXIDE) [Concomitant]
  21. ALAXYL GRANULE (MADE BY BUKWANG) (ALAXYL GRANULE (MADE BY BUKWANG)) [Concomitant]
  22. ESCITALOPRAM OXALATE (ESCITALOPRAM OXALATE) [Concomitant]
  23. DEXTROSE/SODIUM CHLORIDE (DEXTROSE/SODIUM CHLORIDE) [Concomitant]
  24. SODIUM CHLORIDE 0.9% [Concomitant]
  25. POTASSIUM CHLORIDE [Concomitant]
  26. METOCLOPRAMIDE HYDROCHLORIDE [Concomitant]
  27. GLUCOSE 10% (GLUCOSE) [Concomitant]
  28. HUMAN REGULAR INSULIN (HUMAN REGULAR INSULIN) [Concomitant]
  29. ALMAGATE (ALMAGATE) [Concomitant]
  30. AMINO ACID 10% (AMINO ACID) [Concomitant]
  31. COMBIFLEX PERI INFU. BAG (MADE BY CHOONG-WAE) (COMBIFLEX PERI INFU. BA [Concomitant]
  32. INSULIN LISPRO (INSULIN LISPRO) [Concomitant]
  33. STREPTASE [Concomitant]
  34. AMOXICILLIN/CLAVULANATE (AMOXICILLIN/CLAVULANATE) [Concomitant]
  35. DOXOFYLLINE (DOXOFYLLINE) [Concomitant]
  36. GLUCOSE/SALINE 5% (GLUCOSE/SALINE 5%) [Concomitant]
  37. LANSOPRAZOLE [Concomitant]
  38. ERYTHROMYCIN [Concomitant]
  39. NPH INSULIN (INSULIN INJECTION, ISOPHANE) [Concomitant]
  40. HUMAN INSULIN (HUMAN INSULIN) [Concomitant]
  41. ACETYLCYSTEINE [Concomitant]
  42. HUMAN NPH INSULIN (HUMAN NPH INSULIN) [Concomitant]
  43. HUMAN REGULAR INSULIN (HUMAN REGULAR INSULIN) [Concomitant]
  44. ACEBROPHYLLINE (ACEBROPHYLLINE) [Concomitant]
  45. NITROGLYCERIN [Concomitant]
  46. BISOPROLOL HEMIFUMARATE (BISOPROLOL HEMIFUMARATE) [Concomitant]
  47. DOMPERIDONE MALEATE (DOMPERIDONE MALEATE) [Concomitant]
  48. CAFSOL (MADE BY CHONG-KUN-DANG) [Concomitant]
  49. INTRALIPID (MADE BY GREENCROSS) [Concomitant]
  50. ALPRAZOLAM [Concomitant]

REACTIONS (4)
  - DIABETIC GASTROPATHY [None]
  - ORAL INTAKE REDUCED [None]
  - PALLOR [None]
  - TOOTHACHE [None]
